FAERS Safety Report 5746878-0 (Version None)
Quarter: 2008Q2

REPORT INFORMATION
  Report Type: 
  Country: None (occurrence: None)
  Receive Date: 20080522
  Receipt Date: 20080514
  Transmission Date: 20081010
  Serious: Yes (Other)
  Sender: FDA-Public Use
  Company Number: FR-PFIZER INC-2008017690

PATIENT
  Sex: Male
  Weight: 66 kg

DRUGS (4)
  1. LYRICA [Suspect]
     Indication: NEURALGIA
     Dosage: DAILY DOSE:300MG
  2. ATENOLOL [Interacting]
     Indication: ARRHYTHMIA
     Dosage: DAILY DOSE:50MG-FREQ:DAILY
  3. CLOPIDOGREL [Concomitant]
  4. ATACAND [Concomitant]

REACTIONS (2)
  - DRUG INTERACTION [None]
  - PERIPHERAL VASCULAR DISORDER [None]
